FAERS Safety Report 15758426 (Version 2)
Quarter: 2019Q1

REPORT INFORMATION
  Report Type: Spontaneous
  Country: FR (occurrence: FR)
  Receive Date: 20181225
  Receipt Date: 20190123
  Transmission Date: 20190417
  Serious: Yes (Death, Hospitalization, Other)
  Sender: FDA-Public Use
  Company Number: FR-TAKEDA-2018TUS036616

PATIENT
  Age: 65 Year
  Sex: Male
  Weight: 55 kg

DRUGS (8)
  1. ODRIK [Concomitant]
     Active Substance: TRANDOLAPRIL
     Indication: HYPERTENSION
     Dosage: UNK, QD
     Route: 048
     Dates: end: 20181205
  2. AMLOR [Concomitant]
     Active Substance: AMLODIPINE BESYLATE
     Indication: HYPERTENSION
     Dosage: UNK, QD
     Route: 048
     Dates: end: 20181205
  3. CORDARONE [Concomitant]
     Active Substance: AMIODARONE HYDROCHLORIDE
     Indication: ATRIAL FIBRILLATION
     Dosage: UNK, 1/WEEK
     Route: 048
     Dates: end: 20181205
  4. DICLOFENAC [Concomitant]
     Active Substance: DICLOFENAC
     Indication: PRODUCT USED FOR UNKNOWN INDICATION
     Dosage: UNK
     Route: 048
     Dates: end: 20181205
  5. TAHOR [Concomitant]
     Active Substance: ATORVASTATIN CALCIUM
     Indication: PRODUCT USED FOR UNKNOWN INDICATION
     Dosage: UNK, QD
     Route: 048
     Dates: end: 20181205
  6. BRINTELLIX [Suspect]
     Active Substance: VORTIOXETINE HYDROBROMIDE
     Indication: DEPRESSION
     Dosage: UNK, QD
     Route: 048
     Dates: end: 20181205
  7. COUMADINE [Interacting]
     Active Substance: WARFARIN SODIUM
     Indication: VALVULOPLASTY CARDIAC
     Dosage: 4 MG, QD
     Route: 048
     Dates: end: 20181205
  8. PARACETAMOL [Concomitant]
     Active Substance: ACETAMINOPHEN
     Indication: PAIN
     Dosage: UNK
     Route: 048
     Dates: end: 20181205

REACTIONS (2)
  - Drug interaction [Fatal]
  - Cerebral haemorrhage [Fatal]

NARRATIVE: CASE EVENT DATE: 20181205
